FAERS Safety Report 18248464 (Version 2)
Quarter: 2020Q4

REPORT INFORMATION
  Report Type: Spontaneous
  Country: JP (occurrence: JP)
  Receive Date: 20200909
  Receipt Date: 20201009
  Transmission Date: 20210113
  Serious: Yes (Other)
  Sender: FDA-Public Use
  Company Number: JP-UCBSA-2020034805

PATIENT
  Age: 8 Decade
  Sex: Male

DRUGS (3)
  1. ETRETINATE [Concomitant]
     Active Substance: ETRETINATE
     Indication: PNEUMOCYSTIS JIROVECII PNEUMONIA
     Dosage: 40 MILLIGRAM
  2. PREDNISOLONE. [Concomitant]
     Active Substance: PREDNISOLONE
     Indication: PRODUCT USED FOR UNKNOWN INDICATION
     Dosage: 20 MILLIGRAM, ONCE DAILY (QD)
     Route: 048
  3. CIMZIA [Suspect]
     Active Substance: CERTOLIZUMAB PEGOL
     Indication: PUSTULAR PSORIASIS
     Dosage: UNK
     Route: 058
     Dates: start: 20200701, end: 20200729

REACTIONS (2)
  - Cytomegalovirus infection reactivation [Unknown]
  - Pneumocystis jirovecii pneumonia [Recovered/Resolved]

NARRATIVE: CASE EVENT DATE: 202008
